FAERS Safety Report 12157749 (Version 1)
Quarter: 2016Q1

REPORT INFORMATION
  Report Type: Spontaneous
  Country: US (occurrence: US)
  Receive Date: 20160308
  Receipt Date: 20160308
  Transmission Date: 20160526
  Serious: No
  Sender: FDA-Public Use
  Company Number: US-JNJFOC-20150101521

PATIENT
  Sex: Male

DRUGS (5)
  1. IMBRUVICA [Suspect]
     Active Substance: IBRUTINIB
     Indication: LYMPHOMA
     Route: 048
     Dates: start: 20141126
  2. PREDNISONE. [Concomitant]
     Active Substance: PREDNISONE
  3. ACYCLOVIR. [Concomitant]
     Active Substance: ACYCLOVIR
  4. PROPRANOLOL [Concomitant]
     Active Substance: PROPRANOLOL\PROPRANOLOL HYDROCHLORIDE
  5. RITUXAN [Concomitant]
     Active Substance: RITUXIMAB

REACTIONS (7)
  - Platelet count decreased [Unknown]
  - Fatigue [Unknown]
  - Decreased appetite [Unknown]
  - Rash erythematous [Unknown]
  - Skin lesion [Unknown]
  - Haemoglobin decreased [Unknown]
  - Epistaxis [Unknown]

NARRATIVE: CASE EVENT DATE: 2014
